FAERS Safety Report 12176450 (Version 1)
Quarter: 2016Q1

REPORT INFORMATION
  Report Type: Spontaneous
  Country: US (occurrence: US)
  Receive Date: 20160314
  Receipt Date: 20160314
  Transmission Date: 20160526
  Serious: No
  Sender: FDA-Public Use
  Company Number: US-PFIZER INC-2016106859

PATIENT
  Sex: Male

DRUGS (1)
  1. ZOLOFT [Suspect]
     Active Substance: SERTRALINE HYDROCHLORIDE
     Dosage: UNK

REACTIONS (6)
  - Hypokinesia [Unknown]
  - Hyperhidrosis [Unknown]
  - Confusional state [Unknown]
  - Activities of daily living impaired [Unknown]
  - Movement disorder [Unknown]
  - Fatigue [Unknown]
